FAERS Safety Report 22160048 (Version 1)
Quarter: 2023Q1

REPORT INFORMATION
  Report Type: Spontaneous
  Country: US (occurrence: US)
  Receive Date: 20230331
  Receipt Date: 20230331
  Transmission Date: 20230418
  Serious: No
  Sender: FDA-Public Use
  Company Number: US-SANOFI-01549730

PATIENT
  Age: 64 Year
  Sex: Female

DRUGS (1)
  1. ENOXAPARIN SODIUM [Suspect]
     Active Substance: ENOXAPARIN SODIUM
     Indication: Knee arthroplasty
     Dosage: 28-DAY COURSE (56 DOSE)

REACTIONS (2)
  - Off label use [Unknown]
  - Product packaging quantity issue [Unknown]
